FAERS Safety Report 22217354 (Version 1)
Quarter: 2023Q2

REPORT INFORMATION
  Report Type: Spontaneous
  Country: KR (occurrence: KR)
  Receive Date: 20230417
  Receipt Date: 20230417
  Transmission Date: 20230721
  Serious: Yes (Other)
  Sender: FDA-Public Use
  Company Number: KR-MYLANLABS-2023M1040703

PATIENT
  Age: 71 Year
  Sex: Female
  Weight: 56.7 kg

DRUGS (7)
  1. CELEBREX [Suspect]
     Active Substance: CELECOXIB
     Indication: Pain
     Dosage: 1 DOSAGE FORM, QD
     Route: 048
     Dates: start: 20201204, end: 20201204
  2. GABAPENTIN [Concomitant]
     Active Substance: GABAPENTIN
     Dosage: 1 DOSAGE FORM, TID
     Route: 048
     Dates: start: 20201204
  3. MAGNESIUM OXIDE [Concomitant]
     Active Substance: MAGNESIUM OXIDE
     Dosage: 1 DOSAGE FORM, TID
     Route: 048
     Dates: start: 20201204
  4. CEFAZOLIN SODIUM [Concomitant]
     Active Substance: CEFAZOLIN SODIUM
     Dosage: 1 DOSAGE FORM, TID
     Route: 042
     Dates: start: 20201203, end: 20201206
  5. RAMOSETRON HYDROCHLORIDE [Concomitant]
     Active Substance: RAMOSETRON HYDROCHLORIDE
     Dosage: 1 DOSAGE FORM, BID
     Route: 042
     Dates: start: 20201203, end: 20201206
  6. TRAMADOL HYDROCHLORIDE [Concomitant]
     Active Substance: TRAMADOL HYDROCHLORIDE
     Dosage: 1 DOSAGE FORM, TID
     Route: 042
     Dates: start: 20201204, end: 20201206
  7. URSODIOL [Concomitant]
     Active Substance: URSODIOL
     Dosage: 1 DOSAGE FORM, BID
     Route: 048

REACTIONS (2)
  - Cachexia [Recovered/Resolved]
  - Hyperhidrosis [Recovered/Resolved]

NARRATIVE: CASE EVENT DATE: 20201204
